FAERS Safety Report 10967185 (Version 1)
Quarter: 2015Q1

REPORT INFORMATION
  Report Type: Spontaneous
  Country: US (occurrence: US)
  Receive Date: 20150330
  Receipt Date: 20150330
  Transmission Date: 20150721
  Serious: No
  Sender: FDA-Public Use
  Company Number: US-SHIRE-US201502782

PATIENT
  Sex: Male
  Weight: 95.24 kg

DRUGS (4)
  1. CINRYZE [Suspect]
     Active Substance: HUMAN C1-ESTERASE INHIBITOR
     Indication: HEREDITARY ANGIOEDEMA
     Dosage: 1000 UNITS, OTHER (EVERY 3 DAYS)
     Route: 042
     Dates: start: 201409, end: 2015
  2. CINRYZE [Suspect]
     Active Substance: HUMAN C1-ESTERASE INHIBITOR
     Indication: PROPHYLAXIS
     Dosage: 1000 UNITS, OTHER (EVERY 4 DAYS)
     Dates: start: 2015
  3. PHENERGAN [Concomitant]
     Active Substance: PROMETHAZINE HYDROCHLORIDE
     Indication: PREMEDICATION
     Dosage: UNK, OTHER (PRIOR TO INFUSION, EVERY 3-4 DAYS)
     Route: 048
     Dates: start: 2015
  4. IBUPROFEN. [Concomitant]
     Active Substance: IBUPROFEN
     Indication: PREMEDICATION
     Dosage: UNK, OTHER(PRIOR TO INFUSION, EVERY 3-4 DAYS)
     Route: 048
     Dates: start: 2015

REACTIONS (4)
  - Chills [Recovered/Resolved]
  - Infusion related reaction [Recovered/Resolved]
  - Tremor [Recovered/Resolved]
  - Vomiting [Recovered/Resolved]

NARRATIVE: CASE EVENT DATE: 2014
